FAERS Safety Report 20041908 (Version 2)
Quarter: 2021Q4

REPORT INFORMATION
  Report Type: Spontaneous
  Country: US (occurrence: US)
  Receive Date: 20211108
  Receipt Date: 20211125
  Transmission Date: 20220303
  Serious: No
  Sender: FDA-Public Use
  Company Number: US-STRONGBRIDGE BIOPHARMA-2021-STR-000364

PATIENT
  Age: 69 Year
  Sex: Male

DRUGS (1)
  1. KEVEYIS [Suspect]
     Active Substance: DICHLORPHENAMIDE
     Indication: Familial periodic paralysis
     Dosage: 50 MG, QD
     Route: 048
     Dates: start: 20211025

REACTIONS (4)
  - Feeling abnormal [Unknown]
  - Increased appetite [Unknown]
  - Somnolence [Unknown]
  - Confusional state [Unknown]

NARRATIVE: CASE EVENT DATE: 20211025
